FAERS Safety Report 18234611 (Version 5)
Quarter: 2020Q4

REPORT INFORMATION
  Report Type: Spontaneous
  Country: US (occurrence: US)
  Receive Date: 20200904
  Receipt Date: 20201117
  Transmission Date: 20210113
  Serious: No
  Sender: FDA-Public Use
  Company Number: US-PFIZER INC-2020343057

PATIENT
  Age: 60 Year
  Sex: Male

DRUGS (1)
  1. TALZENNA [Suspect]
     Active Substance: TALAZOPARIB TOSYLATE
     Indication: GLOTTIS CARCINOMA
     Dosage: 1 MG, 1X/DAY
     Route: 048
     Dates: start: 20200813, end: 20201014

REACTIONS (6)
  - Oropharyngeal pain [Unknown]
  - Off label use [Unknown]
  - Throat tightness [Unknown]
  - Chest discomfort [Unknown]
  - Product use in unapproved indication [Unknown]
  - Rash pustular [Unknown]

NARRATIVE: CASE EVENT DATE: 20200813
